FAERS Safety Report 9278821 (Version 2)
Quarter: 2013Q2

REPORT INFORMATION
  Report Type: Spontaneous
  Country: TR (occurrence: TR)
  Receive Date: 20130508
  Receipt Date: 20130514
  Transmission Date: 20140414
  Serious: Yes (Hospitalization, Other)
  Sender: FDA-Public Use
  Company Number: PHHY2013TR043355

PATIENT
  Age: 53 Year
  Sex: Female

DRUGS (4)
  1. ERGOTAMINE TARTRATE [Suspect]
     Indication: MIGRAINE
     Dosage: 1.5 MG/ DAY
  2. CLARITHROMYCIN [Interacting]
     Indication: LOWER RESPIRATORY TRACT INFECTION
     Dosage: 1000 MG/ DAY
  3. FLUOXETINE [Interacting]
     Indication: RESTLESS LEGS SYNDROME
     Dosage: 20 MG/ DAY
  4. PRAMIPEXOLE [Concomitant]
     Indication: RESTLESS LEGS SYNDROME
     Dosage: 0.25 MG/ DAY

REACTIONS (8)
  - Stress cardiomyopathy [Recovered/Resolved]
  - Dyspnoea [Recovered/Resolved]
  - Chest pain [Recovered/Resolved]
  - Left ventricular dysfunction [Recovered/Resolved]
  - Akinesia [Recovered/Resolved]
  - Toxicity to various agents [Unknown]
  - Drug interaction [Unknown]
  - Burning sensation [Unknown]
